FAERS Safety Report 5837983-9 (Version None)
Quarter: 2008Q3

REPORT INFORMATION
  Report Type: 
  Country: None (occurrence: None)
  Receive Date: 20080808
  Receipt Date: 20080118
  Transmission Date: 20090109
  Serious: No
  Sender: FDA-Public Use
  Company Number: A0704117A

PATIENT
  Age: 59 Year
  Sex: Male

DRUGS (5)
  1. PAROXETINE HCL [Suspect]
     Indication: PANIC DISORDER
     Dosage: 20MG PER DAY
     Route: 048
     Dates: start: 20080111
  2. PRAVASTATIN [Concomitant]
  3. TERAZOSIN HCL [Concomitant]
  4. CLONAZEPAM [Concomitant]
  5. TRAZODONE HCL [Concomitant]

REACTIONS (1)
  - ALOPECIA [None]
